FAERS Safety Report 26065861 (Version 1)
Quarter: 2025Q4

REPORT INFORMATION
  Report Type: Report from Study
  Country: EU (occurrence: EU)
  Receive Date: 20251119
  Receipt Date: 20251119
  Transmission Date: 20260117
  Serious: Yes (Hospitalization, Other)
  Sender: MERCK SHARP & DOHME LLC
  Company Number: EU-009507513-2265063

PATIENT
  Age: 67 Year
  Sex: Female

DRUGS (19)
  1. WINREVAIR [Suspect]
     Active Substance: SOTATERCEPT-CSRK
     Indication: Pulmonary arterial hypertension
     Dosage: UNK
     Dates: start: 202412
  2. WINREVAIR [Suspect]
     Active Substance: SOTATERCEPT-CSRK
     Dosage: UNK
     Dates: start: 202508
  3. WINREVAIR [Suspect]
     Active Substance: SOTATERCEPT-CSRK
  4. WINREVAIR [Suspect]
     Active Substance: SOTATERCEPT-CSRK
  5. WINREVAIR [Suspect]
     Active Substance: SOTATERCEPT-CSRK
     Indication: Pulmonary arterial hypertension
     Dosage: 0.7 MG/KG, FIFTH DOSE, 2 VIAL KIT
     Dates: start: 20250220, end: 20250220
  6. WINREVAIR [Suspect]
     Active Substance: SOTATERCEPT-CSRK
     Dates: start: 202412
  7. WINREVAIR [Suspect]
     Active Substance: SOTATERCEPT-CSRK
  8. WINREVAIR [Suspect]
     Active Substance: SOTATERCEPT-CSRK
  9. ADEMPAS [Concomitant]
     Active Substance: RIOCIGUAT
     Indication: Pulmonary arterial hypertension
     Dosage: 2.5 MG
     Route: 048
  10. ADEMPAS [Concomitant]
     Active Substance: RIOCIGUAT
     Indication: Pulmonary arterial hypertension
     Dosage: FORMULATION DOSE/FREQUENCY: UNKNOWN
  11. TORSEMIDE [Suspect]
     Active Substance: TORSEMIDE
     Dosage: DOSAGE: 10 MG 2-0-0
  12. UPTRAVI [Concomitant]
     Active Substance: SELEXIPAG
     Dosage: DOSAGE: 200 UG 200 UG, 1-0-1
  13. OPSUMIT [Concomitant]
     Active Substance: MACITENTAN
     Dosage: DOSAGE: 10 MG 10 MG, 1-0-0
  14. ASPIRIN [Concomitant]
     Active Substance: ASPIRIN
  15. SPIRONOLACTONE [Suspect]
     Active Substance: SPIRONOLACTONE
     Dosage: 25 MG 1-0-0
  16. SPIRONOLACTONE [Suspect]
     Active Substance: SPIRONOLACTONE
  17. FERROUS GLYCINE SULFATE [Concomitant]
     Active Substance: FERROUS GLYCINE SULFATE
     Dosage: DOSAGE: 100 MG 100 MG 1-0-0 EVERY OTHER DAY
  18. CHOLECALCIFEROL [Concomitant]
     Active Substance: CHOLECALCIFEROL
     Indication: Vitamin D deficiency
     Dosage: 1000 IU 1X/DAY
  19. CHLORTHALIDONE [Suspect]
     Active Substance: CHLORTHALIDONE

REACTIONS (11)
  - Thrombosis [Not Recovered/Not Resolved]
  - Haemangioma of skin [Unknown]
  - Joint swelling [Unknown]
  - Pericarditis [Unknown]
  - Epistaxis [Recovered/Resolved]
  - Peripheral swelling [Unknown]
  - Spider vein [Unknown]
  - Musculoskeletal stiffness [Unknown]
  - Dizziness [Not Recovered/Not Resolved]
  - Malaise [Not Recovered/Not Resolved]
  - Pain in extremity [Unknown]

NARRATIVE: CASE EVENT DATE: 20241201
